FAERS Safety Report 5021113-X (Version None)
Quarter: 2006Q2

REPORT INFORMATION
  Report Type: 
  Country: None (occurrence: None)
  Receive Date: 20060607
  Receipt Date: 20060607
  Transmission Date: 20061013
  Serious: Yes (Life-Threatening)
  Sender: FDA-Public Use
  Company Number: None

PATIENT
  Sex: Male
  Weight: 67 kg

DRUGS (1)
  1. ERTAPENEM   1 GM [Suspect]
     Indication: SKIN ULCER
     Dosage: 1 GM  DAILY  IV
     Route: 042
     Dates: start: 20060411, end: 20060414

REACTIONS (9)
  - ANGIOPATHY [None]
  - GRAND MAL CONVULSION [None]
  - LOSS OF CONSCIOUSNESS [None]
  - MYOCARDIAL INFARCTION [None]
  - POSTICTAL STATE [None]
  - PUPIL FIXED [None]
  - REFUSAL OF TREATMENT BY RELATIVE [None]
  - RESPIRATORY DISTRESS [None]
  - VENTRICULAR FIBRILLATION [None]
